FAERS Safety Report 20605660 (Version 1)
Quarter: 2022Q1

REPORT INFORMATION
  Report Type: Report from Study
  Country: CA (occurrence: CA)
  Receive Date: 20220317
  Receipt Date: 20220317
  Transmission Date: 20220423
  Serious: Yes (Other)
  Sender: FDA-Public Use
  Company Number: CA-ABBVIE-22K-028-4249102-00

PATIENT
  Sex: Female
  Weight: 38.590 kg

DRUGS (3)
  1. HUMIRA [Suspect]
     Active Substance: ADALIMUMAB
     Indication: Rheumatoid arthritis
     Route: 058
     Dates: start: 20200415
  2. ELIQUIS [Suspect]
     Active Substance: APIXABAN
     Indication: Product used for unknown indication
     Route: 065
  3. METHOTREXATE [Concomitant]
     Active Substance: METHOTREXATE
     Indication: Product used for unknown indication
     Dates: end: 202201

REACTIONS (17)
  - Cardiac failure [Unknown]
  - Musculoskeletal disorder [Not Recovered/Not Resolved]
  - Weight decreased [Unknown]
  - Blood blister [Recovered/Resolved]
  - Lymphoproliferative disorder [Not Recovered/Not Resolved]
  - Tenosynovitis [Unknown]
  - Joint swelling [Not Recovered/Not Resolved]
  - Nodule [Unknown]
  - Blister [Unknown]
  - Aspartate aminotransferase increased [Unknown]
  - Blood lactate dehydrogenase increased [Recovering/Resolving]
  - Pleural effusion [Unknown]
  - Platelet count decreased [Unknown]
  - Alanine aminotransferase increased [Unknown]
  - Oedema peripheral [Unknown]
  - Peripheral swelling [Unknown]
  - Arthropathy [Not Recovered/Not Resolved]
